FAERS Safety Report 4950802-8 (Version None)
Quarter: 2006Q1

REPORT INFORMATION
  Report Type: 
  Country: None (occurrence: None)
  Receive Date: 20060321
  Receipt Date: 20060321
  Transmission Date: 20060701
  Serious: No
  Sender: FDA-Public Use
  Company Number: None

PATIENT
  Sex: Female

DRUGS (1)
  1. IMMUNE GLOBULIN-TALECRIS [Suspect]

REACTIONS (4)
  - HEADACHE [None]
  - OEDEMA PERIPHERAL [None]
  - PARAESTHESIA [None]
  - RASH ERYTHEMATOUS [None]
